FAERS Safety Report 20318487 (Version 2)
Quarter: 2022Q1

REPORT INFORMATION
  Report Type: Spontaneous
  Country: US (occurrence: US)
  Receive Date: 20220110
  Receipt Date: 20220112
  Transmission Date: 20220423
  Serious: Yes (Other)
  Sender: FDA-Public Use
  Company Number: US-PFIZER INC-202200019757

PATIENT
  Age: 81 Year
  Sex: Male
  Weight: 88.45 kg

DRUGS (2)
  1. PAXLOVID [Suspect]
     Active Substance: NIRMATRELVIR\RITONAVIR
     Indication: COVID-19 immunisation
     Dosage: UNK, 2X/DAY
     Dates: start: 20220103, end: 20220104
  2. STATIN [ULINASTATIN] [Concomitant]
     Indication: Blood cholesterol abnormal

REACTIONS (1)
  - Hypertension [Recovering/Resolving]

NARRATIVE: CASE EVENT DATE: 20220104
